FAERS Safety Report 16873962 (Version 3)
Quarter: 2019Q4

REPORT INFORMATION
  Report Type: Spontaneous
  Country: US (occurrence: US)
  Receive Date: 20191001
  Receipt Date: 20191202
  Transmission Date: 20200122
  Serious: No
  Sender: FDA-Public Use
  Company Number: US-PFIZER INC-2019424152

PATIENT
  Age: 58 Year
  Sex: Female
  Weight: 92.63 kg

DRUGS (23)
  1. PROAIR HFA [Concomitant]
     Active Substance: ALBUTEROL SULFATE
     Indication: WHEEZING
     Dosage: 2 DF, AS NEEDED, (90 MCG/ACTUATION, INHALE 2 PUFFS AS INSTRUCTED EVERY 4 HOURS AS NEEDED)
  2. GLUCOVANCE [Concomitant]
     Active Substance: GLYBURIDE\METFORMIN HYDROCHLORIDE
     Dosage: UNK UNK, DAILY,(5-500 MG, TAKE 1 TABLET DAILY WITH BREAKFAST)
     Route: 048
  3. ZOHYDRO [Concomitant]
     Active Substance: HYDROCODONE BITARTRATE
     Dosage: 30 MG, 2X/DAY, (TAKE 1 CAPSULE BY MOUTH TWICE DAILY FOR 30 DAYS)
     Route: 048
  4. ASPIRIN (E.C.) [Concomitant]
     Active Substance: ASPIRIN
     Dosage: 81 MG, 1X/DAY
     Route: 048
  5. NITROQUICK [Concomitant]
     Active Substance: NITROGLYCERIN
     Indication: CHEST PAIN
     Dosage: 0.4 MG, AS NEEDED, (DISSOLVE 1 TABLET UNDER THE TONGUE AS NEEDED)
     Route: 060
  6. LIPITOR [Concomitant]
     Active Substance: ATORVASTATIN CALCIUM
     Dosage: 40 MG, 1X/DAY
     Route: 048
  7. BACTROBAN [Concomitant]
     Active Substance: MUPIROCIN\MUPIROCIN CALCIUM
     Dosage: UNK UNK, 3X/DAY, (PLY 1 APPLICATION TO AFFECTED AREA THREE TIMES DAILY)
  8. IMITREX [Concomitant]
     Active Substance: SUMATRIPTAN SUCCINATE
     Indication: MIGRAINE
     Dosage: 50 MG, AS NEEDED
     Route: 048
  9. TRAZODONE [Concomitant]
     Active Substance: TRAZODONE HYDROCHLORIDE
     Dosage: 300 MG, 1X/DAY (AT BEDTIME)
     Route: 048
  10. VITAMIN D3 [Concomitant]
     Active Substance: CHOLECALCIFEROL
     Dosage: 4000 IU, 1X/DAY
     Route: 048
  11. PAXIL [Concomitant]
     Active Substance: PAROXETINE HYDROCHLORIDE
     Dosage: UNK UNK, 1X/DAY, (TAKE 1.5 TABLETS BY MOUTH ONCE DAILY. TAKE 1.5 TABLETS EVERY MORNING)
     Route: 048
  12. QVAR REDIHALER [Concomitant]
     Active Substance: BECLOMETHASONE DIPROPIONATE
     Dosage: 2 DF, 2X/DAY, (INHALE 2 PUFFS BY MOUTH TWICE A DAY)
     Route: 048
  13. LYRICA [Suspect]
     Active Substance: PREGABALIN
     Indication: FIBROMYALGIA
     Dosage: 150 MG, 3X/DAY
     Route: 048
  14. PROAIR HFA [Concomitant]
     Active Substance: ALBUTEROL SULFATE
     Indication: DYSPNOEA
  15. NICODERM CQ [Concomitant]
     Active Substance: NICOTINE
     Dosage: 14 MG, 1X/DAY, (APPLY 1 PATCH AS DIRECTED ONCE DAILY.)
  16. TRAMADOL. [Concomitant]
     Active Substance: TRAMADOL
     Dosage: 300 MG, 1X/DAY (FOR 60 DAYS)
     Route: 048
  17. CARTIA XT [Concomitant]
     Active Substance: DILTIAZEM HYDROCHLORIDE
     Dosage: 240 MG, 1X/DAY
     Route: 048
  18. OMEPRAZOLE. [Concomitant]
     Active Substance: OMEPRAZOLE
     Dosage: 40 MG, 1X/DAY
     Route: 048
  19. KENALOG [Concomitant]
     Active Substance: TRIAMCINOLONE ACETONIDE
     Dosage: UNK UNK, 2X/DAY, (APPLY 1 APPLICATION TO AFFECTED AREA TWICE DAILY)
  20. LINZESS [Concomitant]
     Active Substance: LINACLOTIDE
     Dosage: 290 UG, 1X/DAY
     Route: 048
  21. BRILINTA [Concomitant]
     Active Substance: TICAGRELOR
     Dosage: 90 MG, 2X/DAY
     Route: 048
  22. CARDIZEM CD [Concomitant]
     Active Substance: DILTIAZEM HYDROCHLORIDE
     Dosage: 240 MG, 1X/DAY
     Route: 048
  23. ZOFRAN [Concomitant]
     Active Substance: ONDANSETRON HYDROCHLORIDE
     Dosage: 4 MG, AS NEEDED,(TAKE 1 TABLET BY MOUTH EVERY 8 HOURS AS NEEDED)
     Route: 048

REACTIONS (2)
  - Thinking abnormal [Recovered/Resolved]
  - Pain [Not Recovered/Not Resolved]
